FAERS Safety Report 22522163 (Version 1)
Quarter: 2023Q2

REPORT INFORMATION
  Report Type: Spontaneous
  Country: PL (occurrence: PL)
  Receive Date: 20230605
  Receipt Date: 20230605
  Transmission Date: 20230722
  Serious: Yes (Hospitalization)
  Sender: FDA-Public Use
  Company Number: PL-STADA-277706

PATIENT
  Age: 38 Year

DRUGS (3)
  1. EVEROLIMUS [Suspect]
     Active Substance: EVEROLIMUS
     Indication: Gastrinoma
     Dosage: 10 MG, QD
     Route: 048
     Dates: start: 202102
  2. FAMOTIDINE [Concomitant]
     Active Substance: FAMOTIDINE
     Indication: Gastrinoma
     Dosage: UNK
     Route: 065
     Dates: start: 2021
  3. OCTREOTIDE [Concomitant]
     Active Substance: OCTREOTIDE
     Indication: Gastrinoma
     Dosage: 30 MG, Q4W
     Route: 065
     Dates: start: 202102

REACTIONS (2)
  - Interstitial lung disease [Unknown]
  - Drug ineffective [Unknown]
